FAERS Safety Report 8979419 (Version 1)
Quarter: 2012Q4

REPORT INFORMATION
  Report Type: Report from Study
  Country: GB (occurrence: GB)
  Receive Date: 20121221
  Receipt Date: 20121221
  Transmission Date: 20130627
  Serious: Yes (Hospitalization)
  Sender: FDA-Public Use
  Company Number: GB-ROCHE-1168766

PATIENT
  Sex: Female

DRUGS (2)
  1. TOCILIZUMAB [Suspect]
     Indication: RHEUMATOID ARTHRITIS
     Route: 065
     Dates: start: 20120203, end: 20120301
  2. METHOTREXATE [Concomitant]
     Route: 065
     Dates: end: 20120326

REACTIONS (3)
  - Pelvic adhesions [Recovered/Resolved]
  - Constipation [Unknown]
  - Sepsis [Recovered/Resolved]
